FAERS Safety Report 4677271-X (Version None)
Quarter: 2005Q2

REPORT INFORMATION
  Report Type: 
  Country: None (occurrence: None)
  Receive Date: 20050527
  Receipt Date: 20050511
  Transmission Date: 20051028
  Serious: Yes (Other)
  Sender: FDA-Public Use
  Company Number: TRP_0076_2005

PATIENT
  Age: 50 Year
  Sex: Male
  Weight: 77.1115 kg

DRUGS (2)
  1. RIBASPHERE [Suspect]
     Indication: HEPATITIS C
     Dosage: DF QDAY PO
     Route: 048
     Dates: start: 20041201, end: 20050216
  2. PEG-INTRON [Suspect]
     Indication: HEPATITIS C
     Dosage: DF SC
     Route: 058
     Dates: start: 20041201, end: 20050216

REACTIONS (5)
  - BLINDNESS [None]
  - EYE PRURITUS [None]
  - EYELID PTOSIS [None]
  - HEADACHE [None]
  - RETINAL HAEMORRHAGE [None]
